FAERS Safety Report 4697232-4 (Version None)
Quarter: 2005Q2

REPORT INFORMATION
  Report Type: 
  Country: None (occurrence: None)
  Receive Date: 20050622
  Receipt Date: 20050614
  Transmission Date: 20051028
  Serious: Yes (Other)
  Sender: FDA-Public Use
  Company Number: A01200503408

PATIENT
  Age: 20 Year
  Sex: Female

DRUGS (4)
  1. VALPROATE SODIUM [Suspect]
     Indication: EPILEPSY
     Route: 065
  2. LAMOTRIGINE [Suspect]
     Dosage: 50MG VARIABLE DOSE
     Route: 065
  3. GABAPENTIN [Concomitant]
     Dosage: 1000MG THREE TIMES PER DAY
     Route: 065
  4. CLONAZEPAM [Concomitant]
     Dosage: 1MG TWICE PER DAY
     Route: 065

REACTIONS (11)
  - ABDOMINAL PAIN [None]
  - CONSTIPATION [None]
  - CONVULSION [None]
  - DRUG INEFFECTIVE [None]
  - GRAND MAL CONVULSION [None]
  - LOSS OF CONSCIOUSNESS [None]
  - MENSTRUATION IRREGULAR [None]
  - PORPHYRIA ACUTE [None]
  - SLEEP DISORDER [None]
  - VOMITING [None]
  - WEIGHT DECREASED [None]
